FAERS Safety Report 5568832-4 (Version None)
Quarter: 2007Q4

REPORT INFORMATION
  Report Type: 
  Country: None (occurrence: None)
  Receive Date: 20071220
  Receipt Date: 20070130
  Transmission Date: 20080405
  Serious: No
  Sender: FDA-Public Use
  Company Number: A0637663A

PATIENT
  Sex: Male

DRUGS (7)
  1. AVODART [Suspect]
     Indication: BENIGN PROSTATIC HYPERPLASIA
     Dosage: .5MG PER DAY
     Route: 048
  2. COUMADIN [Concomitant]
  3. DILTIAZEM [Concomitant]
  4. EFFEXOR XR [Concomitant]
  5. ZANTAC [Concomitant]
  6. ZOCOR [Concomitant]
  7. ZESTRIL [Concomitant]

REACTIONS (4)
  - BREAST ENLARGEMENT [None]
  - BREAST TENDERNESS [None]
  - LOCAL SWELLING [None]
  - PRURITUS [None]
